FAERS Safety Report 23781316 (Version 1)
Quarter: 2024Q2

REPORT INFORMATION
  Report Type: Report from Study
  Country: IT (occurrence: IT)
  Receive Date: 20240425
  Receipt Date: 20240425
  Transmission Date: 20240716
  Serious: Yes (Other)
  Sender: FDA-Public Use
  Company Number: None

PATIENT
  Age: 74 Year
  Sex: Female

DRUGS (6)
  1. MIRTAZAPINE [Suspect]
     Active Substance: MIRTAZAPINE
     Dosage: NUMBER OF TABLETS TAKEN UNKNOWN
     Route: 048
     Dates: start: 20230512
  2. RISPERIDONE [Suspect]
     Active Substance: RISPERIDONE
     Dosage: 60 MILLIGRAM
     Route: 048
  3. LORAZEPAM [Suspect]
     Active Substance: LORAZEPAM
     Dosage: 40 MILLIGRAM
     Route: 048
  4. XARENEL [Concomitant]
     Dosage: UNK
  5. CEFUROXIMA ATB [Concomitant]
     Dosage: UNK
     Route: 048
     Dates: start: 20230512
  6. TRAZODONE HYDROCHLORIDE [Concomitant]
     Active Substance: TRAZODONE HYDROCHLORIDE
     Dosage: 150 MILLIGRAM

REACTIONS (4)
  - Sopor [Recovering/Resolving]
  - Vomiting [Recovering/Resolving]
  - Drug abuse [Recovering/Resolving]
  - Toxicity to various agents [Recovering/Resolving]

NARRATIVE: CASE EVENT DATE: 20230512
